FAERS Safety Report 7258529-7 (Version None)
Quarter: 2011Q1

REPORT INFORMATION
  Report Type: 
  Country: None (occurrence: None)
  Receive Date: 20110129
  Receipt Date: 20100503
  Transmission Date: 20110831
  Serious: No
  Sender: FDA-Public Use
  Company Number: US-ABBOTT-10P-163-0642823-00

PATIENT
  Sex: Male

DRUGS (4)
  1. REMICADE [Concomitant]
     Indication: CROHN'S DISEASE
  2. HUMIRA [Suspect]
     Route: 050
     Dates: start: 20090901, end: 20090901
  3. HUMIRA [Suspect]
     Indication: CROHN'S DISEASE
     Route: 050
     Dates: start: 20090101, end: 20090101
  4. HUMIRA [Suspect]
     Dates: start: 20090101, end: 20091201

REACTIONS (3)
  - DRUG EFFECT DECREASED [None]
  - HAEMATOCHEZIA [None]
  - DIARRHOEA [None]
